FAERS Safety Report 5773234-1 (Version None)
Quarter: 2008Q2

REPORT INFORMATION
  Report Type: 
  Country: None (occurrence: None)
  Receive Date: 20080613
  Receipt Date: 20080613
  Transmission Date: 20081010
  Serious: Yes (Other)
  Sender: FDA-Public Use
  Company Number: None

PATIENT
  Age: 83 Year
  Sex: Female
  Weight: 72.5 kg

DRUGS (1)
  1. CEFEPIME [Suspect]
     Indication: PNEUMONIA
     Dosage: 2GM Q12H IV
     Route: 042
     Dates: start: 20080527, end: 20080605

REACTIONS (8)
  - ABDOMINAL PAIN [None]
  - BLOOD CREATININE INCREASED [None]
  - BLOOD UREA INCREASED [None]
  - DYSKINESIA [None]
  - ELECTROENCEPHALOGRAM ABNORMAL [None]
  - MUSCLE TWITCHING [None]
  - PARTIAL SEIZURES [None]
  - PYREXIA [None]
